FAERS Safety Report 9484223 (Version 2)
Quarter: 2013Q3

REPORT INFORMATION
  Report Type: Spontaneous
  Country: CA (occurrence: CA)
  Receive Date: 20130828
  Receipt Date: 20130828
  Transmission Date: 20140515
  Serious: Yes (Other)
  Sender: FDA-Public Use
  Company Number: CA-AMGEN-KDL378023

PATIENT
  Age: 44 Year
  Sex: Female

DRUGS (5)
  1. ENBREL [Suspect]
     Indication: PSORIATIC ARTHROPATHY
     Dosage: UNK UNK, QWK
     Route: 065
     Dates: start: 20091118
  2. SPIRONOLACTONE [Concomitant]
     Dosage: 200 MG, QD
     Route: 048
  3. YASMIN [Concomitant]
     Dosage: UNK UNK, QD
     Route: 048
  4. RABEPRAZOLE SODIUM [Concomitant]
     Dosage: 20 MG, QD
     Route: 048
  5. TRAMADOL HYDROCHLORIDE/PARACETAMOL [Concomitant]
     Dosage: UNK UNK, PRN

REACTIONS (8)
  - Blindness [Recovered/Resolved]
  - Injection site warmth [Unknown]
  - Migraine [Recovering/Resolving]
  - Oropharyngeal pain [Not Recovered/Not Resolved]
  - Ear pruritus [Not Recovered/Not Resolved]
  - Injection site erythema [Unknown]
  - Injection site pruritus [Unknown]
  - Injection site pain [Unknown]
